FAERS Safety Report 24318668 (Version 1)
Quarter: 2024Q3

REPORT INFORMATION
  Report Type: Report from Study
  Country: US (occurrence: US)
  Receive Date: 20240913
  Receipt Date: 20240913
  Transmission Date: 20241016
  Serious: Yes (Other)
  Sender: ABBVIE
  Company Number: US-ABBVIE-5917873

PATIENT
  Sex: Male

DRUGS (1)
  1. RINVOQ [Suspect]
     Active Substance: UPADACITINIB
     Indication: Colitis ulcerative
     Route: 048
     Dates: start: 20240629

REACTIONS (8)
  - Elbow operation [Unknown]
  - Nasopharyngitis [Unknown]
  - Nasal congestion [Unknown]
  - Flatulence [Unknown]
  - Fatigue [Unknown]
  - Constipation [Unknown]
  - Abnormal faeces [Unknown]
  - Cough [Unknown]

NARRATIVE: CASE EVENT DATE: 20240101
